FAERS Safety Report 10236263 (Version 1)
Quarter: 2014Q2

REPORT INFORMATION
  Report Type: Spontaneous
  Country: DE (occurrence: DE)
  Receive Date: 20140613
  Receipt Date: 20140613
  Transmission Date: 20141212
  Serious: Yes (Other)
  Sender: FDA-Public Use
  Company Number: DE-ELI_LILLY_AND_COMPANY-DE201406001216

PATIENT
  Age: 43 Year
  Sex: Male

DRUGS (10)
  1. OLANZAPINE [Suspect]
     Indication: PRODUCT USED FOR UNKNOWN INDICATION
     Dosage: 5 MG, QD
     Route: 048
     Dates: start: 20120703, end: 20120715
  2. MIRTAZAPIN [Suspect]
     Indication: PRODUCT USED FOR UNKNOWN INDICATION
     Dosage: 15 MG, QD
     Route: 048
     Dates: start: 20120702, end: 20120703
  3. MIRTAZAPIN [Suspect]
     Dosage: 30 MG, QD
     Route: 048
     Dates: start: 20120703, end: 20120813
  4. MIRTAZAPIN [Suspect]
     Dosage: 45 MG, QD
     Route: 048
     Dates: start: 20120814, end: 20120826
  5. MIRTAZAPIN [Suspect]
     Dosage: 30 MG, QD
     Route: 048
     Dates: start: 20120827, end: 20120913
  6. MIRTAZAPIN [Suspect]
     Dosage: 15 MG, QD
     Route: 048
     Dates: start: 20120914, end: 20121101
  7. LORAZEPAM [Suspect]
     Indication: PRODUCT USED FOR UNKNOWN INDICATION
     Dosage: 2.5 MG, UNKNOWN
     Route: 048
     Dates: start: 20120703, end: 20120710
  8. LORAZEPAM [Suspect]
     Dosage: 2 MG, QD
     Route: 065
     Dates: start: 20120711, end: 20120716
  9. LORAZEPAM [Suspect]
     Dosage: 1 MG, QD
     Route: 048
     Dates: start: 20120717, end: 20120723
  10. LORAZEPAM [Suspect]
     Dosage: 0.5 MG, QD
     Route: 048
     Dates: start: 20120724, end: 20120727

REACTIONS (4)
  - Metabolic syndrome [Unknown]
  - Weight increased [Recovering/Resolving]
  - Hypertonia [Unknown]
  - Lipids increased [Unknown]
